FAERS Safety Report 4297512-0 (Version None)
Quarter: 2004Q1

REPORT INFORMATION
  Report Type: 
  Country: None (occurrence: None)
  Receive Date: 20040217
  Receipt Date: 20040217
  Transmission Date: 20041129
  Serious: No
  Sender: FDA-Public Use
  Company Number: None

PATIENT
  Age: 43 Year
  Sex: Female
  Weight: 53.5244 kg

DRUGS (1)
  1. MICROGESTIN FE 1/20 [Suspect]
     Indication: CONTRACEPTION
     Dosage: ONE QD
     Dates: start: 20030701

REACTIONS (2)
  - METRORRHAGIA [None]
  - MUSCLE CRAMP [None]
